FAERS Safety Report 5963381-3 (Version None)
Quarter: 2008Q4

REPORT INFORMATION
  Report Type: 
  Country: None (occurrence: None)
  Receive Date: 20081124
  Receipt Date: 20081118
  Transmission Date: 20090506
  Serious: Yes (Other)
  Sender: FDA-Public Use
  Company Number: B0545095A

PATIENT
  Age: 22 Year
  Sex: Female

DRUGS (3)
  1. PAXIL [Suspect]
     Indication: DEPRESSION
     Dosage: 20MG PER DAY
     Route: 048
     Dates: start: 20080701
  2. ROHYPNOL [Concomitant]
     Route: 065
  3. MYSLEE [Concomitant]
     Route: 048

REACTIONS (2)
  - MENSTRUAL DISORDER [None]
  - SUICIDE ATTEMPT [None]
